FAERS Safety Report 10385370 (Version 12)
Quarter: 2015Q1

REPORT INFORMATION
  Report Type: Spontaneous
  Country: IL (occurrence: IL)
  Receive Date: 20140814
  Receipt Date: 20150102
  Transmission Date: 20150720
  Serious: Yes (Other)
  Sender: FDA-Public Use
  Company Number: IL-PFIZER INC-2014022206

PATIENT
  Age: 46 Year
  Sex: Female

DRUGS (3)
  1. SIMVA [Concomitant]
     Dosage: 40 MG, UNK
  2. SUTENT [Suspect]
     Active Substance: SUNITINIB MALATE
     Indication: RENAL CELL CARCINOMA
     Dosage: 50 MG, CYCLIC: DAILY, 4 WEEKS ON/ 2 WEEKS OFF, CYCLE NUMBER ABOUT 7, CUMULATIVE DOSE ABOUT 9500
     Route: 048
     Dates: start: 20140117, end: 20141123
  3. SUMATRIDEX [Concomitant]
     Dosage: 100 MG, UNK

REACTIONS (50)
  - Rectal haemorrhage [Recovered/Resolved]
  - Vaginal haemorrhage [Not Recovered/Not Resolved]
  - Constipation [Recovered/Resolved]
  - Skin discolouration [Unknown]
  - Syncope [Unknown]
  - Apathy [Unknown]
  - Alopecia [Not Recovered/Not Resolved]
  - Wound [Recovered/Resolved]
  - Thyroid function test abnormal [Not Recovered/Not Resolved]
  - Vomiting [Recovered/Resolved]
  - Back pain [Not Recovered/Not Resolved]
  - Abdominal pain upper [Recovering/Resolving]
  - Pigmentation disorder [Unknown]
  - Nasopharyngitis [Recovered/Resolved]
  - Head discomfort [Recovering/Resolving]
  - Erythema [Unknown]
  - Decreased appetite [Recovering/Resolving]
  - Stomatitis [Recovered/Resolved]
  - Headache [Not Recovered/Not Resolved]
  - Burning sensation [Recovering/Resolving]
  - Disease progression [Unknown]
  - Ageusia [Not Recovered/Not Resolved]
  - Pain [Not Recovered/Not Resolved]
  - Chills [Not Recovered/Not Resolved]
  - Skin exfoliation [Not Recovered/Not Resolved]
  - Dry skin [Not Recovered/Not Resolved]
  - Oral pain [Not Recovered/Not Resolved]
  - Diarrhoea [Recovering/Resolving]
  - Rash [Unknown]
  - Sleep disorder [Not Recovered/Not Resolved]
  - Nail bed inflammation [Not Recovered/Not Resolved]
  - Abdominal pain upper [Recovered/Resolved]
  - Oropharyngeal pain [Recovering/Resolving]
  - Dysgeusia [Not Recovered/Not Resolved]
  - Flatulence [Not Recovered/Not Resolved]
  - Renal cell carcinoma [Unknown]
  - Skin discolouration [Recovered/Resolved]
  - Migraine [Not Recovered/Not Resolved]
  - Eyelid oedema [Unknown]
  - Skin abrasion [Not Recovered/Not Resolved]
  - Blood pressure fluctuation [Not Recovered/Not Resolved]
  - Asthenia [Not Recovered/Not Resolved]
  - Dry mouth [Not Recovered/Not Resolved]
  - Feeling abnormal [Not Recovered/Not Resolved]
  - Local swelling [Unknown]
  - Pain in extremity [Not Recovered/Not Resolved]
  - Nausea [Recovered/Resolved]
  - Body temperature increased [Recovered/Resolved]
  - Throat irritation [Not Recovered/Not Resolved]
  - Mouth injury [Unknown]

NARRATIVE: CASE EVENT DATE: 2014
